FAERS Safety Report 4310832-6 (Version None)
Quarter: 2004Q1

REPORT INFORMATION
  Report Type: 
  Country: None (occurrence: None)
  Receive Date: 20040302
  Receipt Date: 20040220
  Transmission Date: 20041129
  Serious: Yes (Other)
  Sender: FDA-Public Use
  Company Number: JP-JNJFOC-20040100763

PATIENT
  Age: 72 Year
  Sex: Female

DRUGS (3)
  1. LEVOFLOXACIN [Suspect]
     Indication: ACUTE SINUSITIS
     Dosage: 500 MG, 1 IN 1 DAY, ORAL
     Route: 048
     Dates: start: 20031007, end: 20031012
  2. LEVOFLOXACIN [Suspect]
     Indication: PHARYNGITIS
     Dosage: 500 MG, 1 IN 1 DAY, ORAL
     Route: 048
     Dates: start: 20031007, end: 20031012
  3. ELLATUN (TRAMAZOLINE HYDROCHLORIDE) [Concomitant]

REACTIONS (3)
  - AGEUSIA [None]
  - ANOSMIA [None]
  - HYPOGEUSIA [None]
